FAERS Safety Report 10390282 (Version 1)
Quarter: 2014Q3

REPORT INFORMATION
  Report Type: Spontaneous
  Country: US (occurrence: US)
  Receive Date: 20140818
  Receipt Date: 20140818
  Transmission Date: 20150326
  Serious: No
  Sender: FDA-Public Use
  Company Number: US-PFIZER INC-2014225319

PATIENT
  Age: 73 Year
  Sex: Female

DRUGS (5)
  1. PRAVACHOL [Suspect]
     Active Substance: PRAVASTATIN SODIUM
     Dosage: UNK
  2. LIPITOR [Suspect]
     Active Substance: ATORVASTATIN CALCIUM
     Dosage: UNK
  3. ADVIL [Suspect]
     Active Substance: IBUPROFEN
     Dosage: UNK
  4. NIACIN. [Suspect]
     Active Substance: NIACIN
     Dosage: UNK
  5. NIASPAN [Suspect]
     Active Substance: NIACIN
     Dosage: 500 MG, UNK

REACTIONS (1)
  - Drug hypersensitivity [Unknown]
